FAERS Safety Report 7133746-5 (Version None)
Quarter: 2010Q4

REPORT INFORMATION
  Report Type: 
  Country: None (occurrence: None)
  Receive Date: 20101203
  Receipt Date: 20101123
  Transmission Date: 20110411
  Serious: Yes (Hospitalization)
  Sender: FDA-Public Use
  Company Number: US-BIOGENIDEC-2010BI027529

PATIENT
  Sex: Female

DRUGS (1)
  1. AVONEX [Suspect]
     Indication: MULTIPLE SCLEROSIS
     Route: 030
     Dates: start: 20040102

REACTIONS (4)
  - ANAESTHETIC COMPLICATION NEUROLOGICAL [None]
  - INTERVERTEBRAL DISC COMPRESSION [None]
  - MULTIPLE SCLEROSIS RELAPSE [None]
  - TYPE 2 DIABETES MELLITUS [None]
